FAERS Safety Report 15647806 (Version 1)
Quarter: 2018Q4

REPORT INFORMATION
  Report Type: Spontaneous
  Country: US (occurrence: US)
  Receive Date: 20181122
  Receipt Date: 20181122
  Transmission Date: 20190205
  Serious: No
  Sender: FDA-Public Use
  Company Number: US-009507513-1811USA007773

PATIENT
  Age: 63 Year
  Sex: Male
  Weight: 89.8 kg

DRUGS (5)
  1. CISPLATIN. [Concomitant]
     Active Substance: CISPLATIN
     Dosage: 90 MILLIGRAM, QD
     Route: 042
     Dates: start: 20181024, end: 20181024
  2. PALONOSETRON HYDROCHLORIDE. [Concomitant]
     Active Substance: PALONOSETRON HYDROCHLORIDE
     Dosage: 0.25MG.TOTAL DAILY DOSE 0.25MG
     Route: 042
     Dates: start: 20181024, end: 20181024
  3. DEXAMETHASONE. [Concomitant]
     Active Substance: DEXAMETHASONE
     Dosage: 12 MILLIGRAM, QD
     Route: 042
     Dates: start: 20181024, end: 20181024
  4. EMEND [Suspect]
     Active Substance: APREPITANT
     Indication: NEOPLASM MALIGNANT
     Dosage: 150 MILLIGRAM, ONCE
     Route: 042
     Dates: start: 20181024, end: 20181024
  5. MAGNESIUM SULFATE. [Concomitant]
     Active Substance: MAGNESIUM SULFATE
     Indication: TONGUE NEOPLASM MALIGNANT STAGE UNSPECIFIED
     Dosage: 2 GRAM, QD
     Route: 042
     Dates: start: 20181024, end: 20181024

REACTIONS (3)
  - Infusion site pain [Recovered/Resolved]
  - Infusion site rash [Recovered/Resolved]
  - Product use in unapproved indication [Unknown]

NARRATIVE: CASE EVENT DATE: 20181024
